FAERS Safety Report 6508285-2 (Version None)
Quarter: 2009Q4

REPORT INFORMATION
  Report Type: 
  Country: None (occurrence: None)
  Receive Date: 20091221
  Receipt Date: 20090604
  Transmission Date: 20100525
  Serious: No
  Sender: FDA-Public Use
  Company Number: US-ASTRAZENECA-2004UW18131

PATIENT
  Age: 920 Month
  Sex: Female
  Weight: 87.1 kg

DRUGS (7)
  1. CRESTOR [Suspect]
     Indication: BLOOD CHOLESTEROL INCREASED
     Route: 048
     Dates: start: 20040824
  2. CRESTOR [Suspect]
     Dosage: 1/2 TAB ON THURSDAY AND SUNDAY
     Route: 048
  3. ALBUTEROL [Concomitant]
  4. FLOVENT [Concomitant]
  5. DIOVAN [Concomitant]
  6. MAXZIDE [Concomitant]
  7. POTASSIUM [Concomitant]

REACTIONS (6)
  - ABDOMINAL PAIN UPPER [None]
  - DIARRHOEA [None]
  - DRUG INTOLERANCE [None]
  - HYPERHIDROSIS [None]
  - NAUSEA [None]
  - VOMITING [None]
